FAERS Safety Report 7257937-8 (Version None)
Quarter: 2011Q1

REPORT INFORMATION
  Report Type: 
  Country: None (occurrence: None)
  Receive Date: 20110129
  Receipt Date: 20100709
  Transmission Date: 20110831
  Serious: Yes (Other)
  Sender: FDA-Public Use
  Company Number: US-ABBOTT-10P-163-0650456-00

PATIENT
  Sex: Female

DRUGS (7)
  1. HUMIRA [Suspect]
     Indication: RHEUMATOID ARTHRITIS
     Dates: start: 20071201, end: 20100501
  2. LEVOXYL [Concomitant]
     Indication: PRODUCT USED FOR UNKNOWN INDICATION
  3. MICARDIS [Concomitant]
     Indication: PRODUCT USED FOR UNKNOWN INDICATION
  4. METFORMIN [Concomitant]
     Indication: PRODUCT USED FOR UNKNOWN INDICATION
  5. LIPITOR [Concomitant]
     Indication: PRODUCT USED FOR UNKNOWN INDICATION
  6. METHOTREXATE [Concomitant]
     Indication: PRODUCT USED FOR UNKNOWN INDICATION
  7. VOLTAREN [Concomitant]
     Indication: PRODUCT USED FOR UNKNOWN INDICATION

REACTIONS (3)
  - DYSPNOEA [None]
  - SQUAMOUS CELL CARCINOMA [None]
  - COUGH [None]
